FAERS Safety Report 6406435-X (Version None)
Quarter: 2009Q4

REPORT INFORMATION
  Report Type: 
  Country: None (occurrence: None)
  Receive Date: 20091019
  Receipt Date: 20091007
  Transmission Date: 20100525
  Serious: Yes (Hospitalization)
  Sender: FDA-Public Use
  Company Number: FR-JNJCH-2009026917

PATIENT
  Age: 48 Year
  Sex: Male

DRUGS (1)
  1. MINOXIDIL [Suspect]
     Indication: DRUG USE FOR UNKNOWN INDICATION
     Dosage: TEXT:UNSPECIFIED 4 TIME DAILY
     Route: 061

REACTIONS (8)
  - ANTINUCLEAR ANTIBODY POSITIVE [None]
  - ASTHENIA [None]
  - CHEST PAIN [None]
  - DECREASED APPETITE [None]
  - INFLAMMATORY PAIN [None]
  - INSOMNIA [None]
  - RETINAL DISORDER [None]
  - WEIGHT DECREASED [None]
